FAERS Safety Report 8312629-9 (Version None)
Quarter: 2012Q2

REPORT INFORMATION
  Report Type: 
  Country: None (occurrence: None)
  Receive Date: 20120424
  Receipt Date: 20120412
  Transmission Date: 20120825
  Serious: Yes (Other)
  Sender: FDA-Public Use
  Company Number: 1204-193

PATIENT

DRUGS (1)
  1. EYLEA [Suspect]

REACTIONS (1)
  - BLINDNESS [None]
